FAERS Safety Report 6828011-7 (Version None)
Quarter: 2010Q3

REPORT INFORMATION
  Report Type: 
  Country: None (occurrence: None)
  Receive Date: 20100709
  Receipt Date: 20100706
  Transmission Date: 20110219
  Serious: Yes (Hospitalization)
  Sender: FDA-Public Use
  Company Number: A0869314A

PATIENT
  Age: 57 Year
  Sex: Male

DRUGS (7)
  1. PAZOPANIB [Suspect]
     Indication: NEOPLASM
     Dosage: 400MG PER DAY
     Route: 048
     Dates: start: 20100413, end: 20100622
  2. IXABEPILONE [Suspect]
     Indication: NEOPLASM
     Route: 042
     Dates: start: 20100413, end: 20100615
  3. ATENOLOL [Concomitant]
  4. OMEPRAZOLE [Concomitant]
  5. SIMVASTATIN [Concomitant]
  6. MEGACE [Concomitant]
  7. ZOMETA [Concomitant]

REACTIONS (4)
  - CHILLS [None]
  - FATIGUE [None]
  - INFECTION [None]
  - SEPSIS [None]
